FAERS Safety Report 8557776-1 (Version None)
Quarter: 2012Q3

REPORT INFORMATION
  Report Type: 
  Country: None (occurrence: None)
  Receive Date: 20120801
  Receipt Date: 20120718
  Transmission Date: 20120928
  Serious: No
  Sender: FDA-Public Use
  Company Number: US-ASTRAZENECA-2006UW00943

PATIENT
  Age: 82 Year
  Sex: Female

DRUGS (2)
  1. TOPROL-XL [Suspect]
     Route: 048
  2. ARIMIDEX [Suspect]
     Route: 048

REACTIONS (8)
  - MALAISE [None]
  - OEDEMA PERIPHERAL [None]
  - HYPERTENSION [None]
  - JOINT SWELLING [None]
  - VISUAL IMPAIRMENT [None]
  - INSOMNIA [None]
  - OSTEOPOROSIS [None]
  - NAUSEA [None]
